FAERS Safety Report 5804854-3 (Version None)
Quarter: 2008Q3

REPORT INFORMATION
  Report Type: 
  Country: None (occurrence: None)
  Receive Date: 20080709
  Receipt Date: 20080703
  Transmission Date: 20090109
  Serious: Yes (Hospitalization)
  Sender: FDA-Public Use
  Company Number: JP-AVENTIS-200816334GDDC

PATIENT
  Age: 63 Year
  Sex: Male

DRUGS (8)
  1. RIFADIN [Suspect]
     Indication: PULMONARY TUBERCULOSIS
     Dates: start: 20080529, end: 20080615
  2. ISCOTIN                            /00030201/ [Concomitant]
  3. PYRAMIDE [Concomitant]
  4. ESANBUTOL [Concomitant]
  5. PYDOXAL [Concomitant]
  6. SUNRYTHM [Concomitant]
  7. WARFARIN SODIUM [Concomitant]
  8. DIGOXIN [Concomitant]

REACTIONS (1)
  - HYPONATRAEMIA [None]
